FAERS Safety Report 9889105 (Version 1)
Quarter: 2014Q3

REPORT INFORMATION
  Report Type: Spontaneous
  Country: US (occurrence: None)
  Receive Date: 20140716
  Receipt Date: 20140716
  Transmission Date: 20150326
  Serious: Yes (Hospitalization)
  Sender: FDA-Public Use
  Company Number: AG-2014-000028

PATIENT
  Age: 91 Year
  Sex: Male

DRUGS (1)
  1. CHLORAMBUCIL [Suspect]
     Active Substance: CHLORAMBUCIL
     Indication: CHRONIC LYMPHOCYTIC LEUKAEMIA
     Dosage: 4 MG (4 MG, 3 WEEK ON 1 WEEK OFF), ORAL
     Route: 048
     Dates: start: 20120504, end: 20120701

REACTIONS (4)
  - Gastrooesophageal reflux disease [None]
  - Pancytopenia [None]
  - Oesophagitis [None]
  - Hypoglobulinaemia [None]

NARRATIVE: CASE EVENT DATE: 20120605
